FAERS Safety Report 13253061 (Version 2)
Quarter: 2017Q1

REPORT INFORMATION
  Report Type: Spontaneous
  Country: CZ (occurrence: CZ)
  Receive Date: 20170220
  Receipt Date: 20170223
  Transmission Date: 20170428
  Serious: No
  Sender: FDA-Public Use
  Company Number: PHHY2017CZ021218

PATIENT
  Sex: Female

DRUGS (12)
  1. TRITACE [Concomitant]
     Active Substance: RAMIPRIL
     Indication: HYPERTENSION
  2. BISOPROL [Concomitant]
     Indication: MYOCARDIAL ISCHAEMIA
     Route: 065
  3. APO-PAROXETINE [Concomitant]
     Active Substance: PAROXETINE
     Indication: MYOCARDIAL ISCHAEMIA
     Route: 065
  4. BISOPROL [Concomitant]
     Indication: HYPERTENSION
  5. AFINITOR [Suspect]
     Active Substance: EVEROLIMUS
     Indication: BREAST CANCER
     Dosage: 10 MG, UNK
     Route: 065
     Dates: start: 20161129, end: 20170125
  6. EXEMESTAN [Concomitant]
     Active Substance: EXEMESTANE
     Indication: BREAST CANCER
     Dosage: 25 MG, UNK
     Route: 065
  7. FURON [Concomitant]
     Active Substance: FUROSEMIDE
     Indication: HYPERTENSION
  8. TINTAROS [Concomitant]
     Indication: MYOCARDIAL ISCHAEMIA
     Route: 065
  9. APO-PAROXETINE [Concomitant]
     Active Substance: PAROXETINE
     Indication: HYPERTENSION
  10. TRITACE [Concomitant]
     Active Substance: RAMIPRIL
     Indication: MYOCARDIAL ISCHAEMIA
     Route: 065
  11. TINTAROS [Concomitant]
     Indication: HYPERTENSION
  12. FURON [Concomitant]
     Active Substance: FUROSEMIDE
     Indication: MYOCARDIAL ISCHAEMIA
     Route: 065

REACTIONS (2)
  - Rash [Recovering/Resolving]
  - Pruritus [Recovering/Resolving]

NARRATIVE: CASE EVENT DATE: 20170125
